FAERS Safety Report 21045399 (Version 2)
Quarter: 2022Q3

REPORT INFORMATION
  Report Type: Spontaneous
  Country: JP (occurrence: JP)
  Receive Date: 20220706
  Receipt Date: 20220720
  Transmission Date: 20221026
  Serious: Yes (Other)
  Sender: FDA-Public Use
  Company Number: JP-TAKEDA-2022TJP062385

PATIENT
  Age: 36 Year
  Sex: Female
  Weight: 61.2 kg

DRUGS (1)
  1. AGRYLIN [Suspect]
     Active Substance: ANAGRELIDE HYDROCHLORIDE
     Indication: Product used for unknown indication
     Dosage: 1.0 MILLIGRAM PER TIMES
     Route: 048

REACTIONS (11)
  - Coronary artery dissection [Unknown]
  - Ventricular hypokinesia [Unknown]
  - Chest pain [Unknown]
  - Low density lipoprotein abnormal [Unknown]
  - Aspartate aminotransferase increased [Unknown]
  - Blood lactate dehydrogenase abnormal [Unknown]
  - Blood creatine phosphokinase abnormal [Unknown]
  - Troponin T increased [Unknown]
  - Fibrin degradation products increased [Unknown]
  - Fibrin D dimer increased [Unknown]
  - Tachycardia [Unknown]
